FAERS Safety Report 8157896-X (Version None)
Quarter: 2012Q1

REPORT INFORMATION
  Report Type: 
  Country: None (occurrence: None)
  Receive Date: 20120222
  Receipt Date: 20120215
  Transmission Date: 20120608
  Serious: Yes (Other)
  Sender: FDA-Public Use
  Company Number: PHHY2012IT014519

PATIENT

DRUGS (3)
  1. HEPARIN [Concomitant]
     Dosage: UNK UKN, UNK
  2. CERTICAN [Suspect]
     Indication: HEART TRANSPLANT
     Dosage: 0.25 MG, BID
  3. NEORAL [Suspect]
     Indication: RENAL TRANSPLANT
     Dosage: UNK UKN, UNK

REACTIONS (2)
  - PULMONARY EMBOLISM [None]
  - DEEP VEIN THROMBOSIS [None]
